FAERS Safety Report 21817608 (Version 11)
Quarter: 2025Q4

REPORT INFORMATION
  Report Type: Spontaneous
  Country: CA (occurrence: CA)
  Receive Date: 20230104
  Receipt Date: 20251124
  Transmission Date: 20260117
  Serious: Yes (Death, Life-Threatening, Hospitalization, Disabling, Congenital Anomaly, Other)
  Sender: NOVARTIS
  Company Number: CA-002147023-NVSC2023CA000968

PATIENT
  Age: 43 Year
  Sex: Female
  Weight: 68 kg

DRUGS (99)
  1. ADALIMUMAB [Suspect]
     Active Substance: ADALIMUMAB
     Indication: Rheumatoid arthritis
     Dosage: 4 MG (INFUSION)
     Route: 058
  2. ADALIMUMAB [Suspect]
     Active Substance: ADALIMUMAB
     Dosage: 40 MG, SOLUTION SUBCUTANEOUS
     Route: 058
  3. AIMOVIG [Suspect]
     Active Substance: ERENUMAB-AOOE
     Indication: Migraine
     Dosage: UNK
     Route: 065
  4. ALENDRONIC ACID [Suspect]
     Active Substance: ALENDRONIC ACID
     Indication: Rheumatoid arthritis
     Dosage: UNK
     Route: 048
  5. ALENDRONIC ACID [Suspect]
     Active Substance: ALENDRONIC ACID
     Dosage: 5 MG
     Route: 048
  6. ALENDRONIC ACID [Suspect]
     Active Substance: ALENDRONIC ACID
     Dosage: UNK
     Route: 065
  7. CANDESARTAN [Suspect]
     Active Substance: CANDESARTAN
     Indication: Migraine
     Dosage: UNK
     Route: 048
  8. COSENTYX [Suspect]
     Active Substance: SECUKINUMAB
     Indication: Psoriatic arthropathy
     Dosage: UNK (INJECTION NOS)
     Route: 065
  9. COSENTYX [Suspect]
     Active Substance: SECUKINUMAB
     Indication: Rheumatoid arthritis
     Dosage: UNK
     Route: 065
  10. COSENTYX [Suspect]
     Active Substance: SECUKINUMAB
     Indication: Product used for unknown indication
     Dosage: UNK
     Route: 065
  11. DICLOFENAC SODIUM [Suspect]
     Active Substance: DICLOFENAC SODIUM
     Indication: Product used for unknown indication
     Dosage: 50 MG
     Route: 065
  12. ERELZI [Suspect]
     Active Substance: ETANERCEPT-SZZS
     Indication: Rheumatoid arthritis
     Dosage: UNK
     Route: 058
  13. ERELZI [Suspect]
     Active Substance: ETANERCEPT-SZZS
     Dosage: 50 MG, QW (1 EVERY 1 WEEKS)
     Route: 065
  14. LEFLUNOMIDE [Suspect]
     Active Substance: LEFLUNOMIDE
     Indication: Rheumatoid arthritis
     Dosage: UNK
     Route: 048
  15. LEFLUNOMIDE [Suspect]
     Active Substance: LEFLUNOMIDE
     Dosage: 20 MG
     Route: 065
  16. LEFLUNOMIDE [Suspect]
     Active Substance: LEFLUNOMIDE
     Dosage: 10 MG, QD
     Route: 065
  17. LEFLUNOMIDE [Suspect]
     Active Substance: LEFLUNOMIDE
     Dosage: 20 MG, QD
     Route: 065
  18. LEFLUNOMIDE [Suspect]
     Active Substance: LEFLUNOMIDE
     Dosage: 20 MG
     Route: 048
  19. LEFLUNOMIDE [Suspect]
     Active Substance: LEFLUNOMIDE
     Dosage: UNK
     Route: 048
  20. LEFLUNOMIDE [Suspect]
     Active Substance: LEFLUNOMIDE
     Dosage: UNK
     Route: 048
  21. LEFLUNOMIDE [Suspect]
     Active Substance: LEFLUNOMIDE
     Dosage: UNK
     Route: 065
  22. LEFLUNOMIDE [Suspect]
     Active Substance: LEFLUNOMIDE
     Dosage: UNK
     Route: 065
  23. LEFLUNOMIDE [Suspect]
     Active Substance: LEFLUNOMIDE
     Dosage: UNK
     Route: 065
  24. RITUXIMAB [Suspect]
     Active Substance: RITUXIMAB
     Indication: Rheumatoid arthritis
     Dosage: UNK
     Route: 042
  25. RITUXIMAB [Suspect]
     Active Substance: RITUXIMAB
     Dosage: UNK
     Route: 058
  26. RITUXIMAB [Suspect]
     Active Substance: RITUXIMAB
     Dosage: UNK
     Route: 043
  27. RITUXIMAB [Suspect]
     Active Substance: RITUXIMAB
     Dosage: UNK
     Route: 041
  28. RITUXIMAB [Suspect]
     Active Substance: RITUXIMAB
     Dosage: UNK (CONCENTRATE AND SOLVENT FOR SOLUTION FOR INJECTION)
     Route: 042
  29. VOLTAREN [Suspect]
     Active Substance: DICLOFENAC SODIUM
     Indication: Product used for unknown indication
     Dosage: UNK
     Route: 065
  30. VOLTAREN [Suspect]
     Active Substance: DICLOFENAC SODIUM
     Indication: Product used for unknown indication
     Dosage: UNK
     Route: 065
  31. FOLIC ACID [Suspect]
     Active Substance: FOLIC ACID
     Indication: Rheumatoid arthritis
     Dosage: 5 MG
     Route: 048
  32. FOLIC ACID [Suspect]
     Active Substance: FOLIC ACID
     Dosage: 5 MG
     Route: 065
  33. FOLIC ACID [Suspect]
     Active Substance: FOLIC ACID
     Dosage: 1 MG
     Route: 058
  34. FOLIC ACID [Suspect]
     Active Substance: FOLIC ACID
     Dosage: 15 MG
     Route: 065
  35. FOLIC ACID [Suspect]
     Active Substance: FOLIC ACID
     Dosage: 500 MG
     Route: 048
  36. FOLIC ACID [Suspect]
     Active Substance: FOLIC ACID
     Dosage: 25 MG
     Route: 048
  37. FOLIC ACID [Suspect]
     Active Substance: FOLIC ACID
     Dosage: 0.5 MG
     Route: 048
  38. FOLIC ACID [Suspect]
     Active Substance: FOLIC ACID
     Dosage: 500 MG
     Route: 065
  39. FOLIC ACID [Suspect]
     Active Substance: FOLIC ACID
     Dosage: 0.5 MG
     Route: 065
  40. FOLIC ACID [Suspect]
     Active Substance: FOLIC ACID
     Dosage: 15 MG
     Route: 048
  41. FOLIC ACID [Suspect]
     Active Substance: FOLIC ACID
     Dosage: 1 MG
     Route: 065
  42. FOLIC ACID [Suspect]
     Active Substance: FOLIC ACID
     Dosage: 50 MG
     Route: 065
  43. FOLIC ACID [Suspect]
     Active Substance: FOLIC ACID
     Dosage: 1 G
     Route: 048
  44. FOLIC ACID [Suspect]
     Active Substance: FOLIC ACID
     Dosage: 5 MG, Q24H ((1 EVERY 24 HOURS)
     Route: 048
  45. FOLIC ACID [Suspect]
     Active Substance: FOLIC ACID
     Dosage: 1 MG
     Route: 048
  46. FOLIC ACID [Suspect]
     Active Substance: FOLIC ACID
     Dosage: UNK
     Route: 065
  47. FOLIC ACID [Suspect]
     Active Substance: FOLIC ACID
     Dosage: 3 MG
     Route: 065
  48. FOLIC ACID [Suspect]
     Active Substance: FOLIC ACID
     Dosage: UNK
     Route: 065
  49. ATOMOXETINE HYDROCHLORIDE [Suspect]
     Active Substance: ATOMOXETINE HYDROCHLORIDE
     Indication: Migraine
     Dosage: 1 DOSAGE FORM, QOD
     Route: 065
  50. METHOTREXATE [Suspect]
     Active Substance: METHOTREXATE
     Indication: Rheumatoid arthritis
     Dosage: 25 MG
     Route: 058
  51. METHOTREXATE [Suspect]
     Active Substance: METHOTREXATE
     Indication: Psoriatic arthropathy
     Dosage: 1 DOSAGE FORM
     Route: 065
  52. METHOTREXATE [Suspect]
     Active Substance: METHOTREXATE
     Dosage: 20 MG, QD
     Route: 048
  53. METHOTREXATE [Suspect]
     Active Substance: METHOTREXATE
     Dosage: 1 G (1 EVERY 5 DAYS)
     Route: 048
  54. METHOTREXATE [Suspect]
     Active Substance: METHOTREXATE
     Dosage: 25 MG (1 EVERY 5 DAYS)
     Route: 048
  55. METHOTREXATE [Suspect]
     Active Substance: METHOTREXATE
     Dosage: 25 MG, QW
     Route: 013
  56. METHOTREXATE [Suspect]
     Active Substance: METHOTREXATE
     Dosage: UNK
     Route: 051
  57. METHOTREXATE [Suspect]
     Active Substance: METHOTREXATE
     Dosage: 25 MG, QW
     Route: 058
  58. METHOTREXATE [Suspect]
     Active Substance: METHOTREXATE
     Dosage: 25 MG
     Route: 048
  59. METHOTREXATE [Suspect]
     Active Substance: METHOTREXATE
     Dosage: 25 MG, QW
     Route: 013
  60. METHOTREXATE [Suspect]
     Active Substance: METHOTREXATE
     Dosage: UNK, QD
     Route: 048
  61. METHOTREXATE [Suspect]
     Active Substance: METHOTREXATE
     Dosage: 20 MG, QW
     Route: 065
  62. METHOTREXATE [Suspect]
     Active Substance: METHOTREXATE
     Dosage: 20 MG, QD
     Route: 065
  63. METHOTREXATE [Suspect]
     Active Substance: METHOTREXATE
     Dosage: 1 DOSAGE FORM, QD
     Route: 048
  64. METHOTREXATE [Suspect]
     Active Substance: METHOTREXATE
     Dosage: 15 MG, QW
     Route: 048
  65. METHOTREXATE [Suspect]
     Active Substance: METHOTREXATE
     Dosage: 2 DOSAGE FORM, Q24H
     Route: 065
  66. METHOTREXATE [Suspect]
     Active Substance: METHOTREXATE
     Dosage: 1 G, Q24H
     Route: 048
  67. METHOTREXATE [Suspect]
     Active Substance: METHOTREXATE
     Dosage: 1 DOSAGE FORM, Q24H
     Route: 048
  68. METHOTREXATE [Suspect]
     Active Substance: METHOTREXATE
     Dosage: 200 MG
     Route: 048
  69. METHOTREXATE [Suspect]
     Active Substance: METHOTREXATE
     Dosage: 20 MG, QW
     Route: 013
  70. METHOTREXATE [Suspect]
     Active Substance: METHOTREXATE
     Dosage: 25 MG
     Route: 014
  71. METHOTREXATE [Suspect]
     Active Substance: METHOTREXATE
     Dosage: 20 MG, Q24H
     Route: 048
  72. METHOTREXATE [Suspect]
     Active Substance: METHOTREXATE
     Dosage: 25 MG, Q24H
     Route: 013
  73. METHOTREXATE [Suspect]
     Active Substance: METHOTREXATE
     Dosage: 25 MG, Q24H
     Route: 048
  74. METHOTREXATE [Suspect]
     Active Substance: METHOTREXATE
     Dosage: 25 MG, QW
     Route: 013
  75. METHOTREXATE [Suspect]
     Active Substance: METHOTREXATE
     Dosage: UNK
     Route: 058
  76. METHOTREXATE [Suspect]
     Active Substance: METHOTREXATE
     Dosage: 1 G, Q24H
     Route: 048
  77. METHOTREXATE [Suspect]
     Active Substance: METHOTREXATE
     Dosage: 25 MG
     Route: 065
  78. METHOTREXATE [Suspect]
     Active Substance: METHOTREXATE
     Dosage: 20 MG
     Route: 065
  79. METHOTREXATE [Suspect]
     Active Substance: METHOTREXATE
     Dosage: 25 MG, QW
     Route: 048
  80. METHOTREXATE [Suspect]
     Active Substance: METHOTREXATE
     Dosage: 15 MG, Q24H
     Route: 048
  81. METHOTREXATE [Suspect]
     Active Substance: METHOTREXATE
     Dosage: 20 MG, QW
     Route: 048
  82. METHOTREXATE [Suspect]
     Active Substance: METHOTREXATE
     Dosage: 20 MG, Q24H
     Route: 065
  83. METHOTREXATE [Suspect]
     Active Substance: METHOTREXATE
     Dosage: 15 MG, Q24H
     Route: 065
  84. METHOTREXATE [Suspect]
     Active Substance: METHOTREXATE
     Dosage: 2 DOSAGE FORM, Q24H
     Route: 065
  85. METHOTREXATE [Suspect]
     Active Substance: METHOTREXATE
     Dosage: 25 MG, QW
     Route: 048
  86. DICLOFENAC SODIUM [Suspect]
     Active Substance: DICLOFENAC SODIUM
     Indication: Product used for unknown indication
     Dosage: 50 MG
     Route: 065
  87. HYRIMOZ [Concomitant]
     Active Substance: ADALIMUMAB-ADAZ
     Indication: Product used for unknown indication
     Dosage: UNK
     Route: 058
  88. HYRIMOZ [Concomitant]
     Active Substance: ADALIMUMAB-ADAZ
     Dosage: UNK
     Route: 065
  89. ATIVAN [Concomitant]
     Active Substance: LORAZEPAM
     Indication: Anxiety
     Dosage: 2 MG
     Route: 065
  90. ATIVAN [Concomitant]
     Active Substance: LORAZEPAM
     Indication: Product used for unknown indication
     Dosage: UNK
     Route: 065
  91. CAFFEINE [Concomitant]
     Active Substance: CAFFEINE
     Indication: Product used for unknown indication
     Dosage: 40 MG
     Route: 065
  92. CAFFEINE [Concomitant]
     Active Substance: CAFFEINE
     Dosage: UNK
     Route: 058
  93. CALCIUM [Concomitant]
     Active Substance: CALCIUM
     Indication: Product used for unknown indication
     Dosage: UNK
     Route: 065
  94. MELOXICAM [Concomitant]
     Active Substance: MELOXICAM
     Indication: Product used for unknown indication
     Dosage: UNK
     Route: 065
  95. PIROXICAM [Concomitant]
     Active Substance: PIROXICAM
     Indication: Product used for unknown indication
     Dosage: 17.86 MG
     Route: 065
  96. RAMIPRIL [Concomitant]
     Active Substance: RAMIPRIL
     Indication: Rheumatoid arthritis
     Dosage: UNK
     Route: 065
  97. RAMIPRIL [Concomitant]
     Active Substance: RAMIPRIL
     Indication: Product used for unknown indication
     Dosage: UNK
     Route: 016
  98. RAMIPRIL [Concomitant]
     Active Substance: RAMIPRIL
     Dosage: UNK
     Route: 042
  99. RAMIPRIL [Concomitant]
     Active Substance: RAMIPRIL
     Dosage: UNK, INTRAVENOUS DRIP
     Route: 042

REACTIONS (53)
  - Arthropathy [Fatal]
  - Blepharospasm [Fatal]
  - Condition aggravated [Fatal]
  - Decreased appetite [Fatal]
  - Drug ineffective [Fatal]
  - Drug ineffective for unapproved indication [Fatal]
  - Drug tolerance decreased [Fatal]
  - Epilepsy [Fatal]
  - Gastrooesophageal reflux disease [Fatal]
  - Infusion related reaction [Fatal]
  - Malaise [Fatal]
  - Memory impairment [Fatal]
  - Migraine [Fatal]
  - Pain [Fatal]
  - Product use issue [Fatal]
  - Rheumatic fever [Fatal]
  - Rheumatoid factor positive [Fatal]
  - Swollen joint count increased [Fatal]
  - Taste disorder [Fatal]
  - Contraindicated product administered [Fatal]
  - Product quality issue [Fatal]
  - Product use in unapproved indication [Fatal]
  - Therapeutic product effect incomplete [Fatal]
  - Treatment failure [Fatal]
  - Off label use [Fatal]
  - Pancreatitis [Fatal]
  - Medication error [Fatal]
  - Intentional product misuse [Fatal]
  - Pustular psoriasis [Fatal]
  - Osteoporosis [Fatal]
  - Dyspnoea [Fatal]
  - Porphyria acute [Fatal]
  - Rectal haemorrhage [Fatal]
  - Laryngitis [Fatal]
  - Weight fluctuation [Fatal]
  - Subcutaneous drug absorption impaired [Fatal]
  - Laboratory test abnormal [Fatal]
  - Back disorder [Fatal]
  - Ill-defined disorder [Fatal]
  - Fluid retention [Fatal]
  - Inappropriate schedule of product administration [Fatal]
  - Myositis [Fatal]
  - Ear infection [Fatal]
  - X-ray abnormal [Fatal]
  - C-reactive protein abnormal [Fatal]
  - Gastrointestinal disorder [Fatal]
  - General symptom [Fatal]
  - Rash vesicular [Fatal]
  - Exostosis [Fatal]
  - Visual impairment [Fatal]
  - Crohn^s disease [Fatal]
  - Coeliac disease [Fatal]
  - Drug-induced liver injury [Fatal]
